FAERS Safety Report 14566683 (Version 1)
Quarter: 2018Q1

REPORT INFORMATION
  Report Type: Spontaneous
  Country: US (occurrence: US)
  Receive Date: 20180222
  Receipt Date: 20180222
  Transmission Date: 20180509
  Serious: Yes (Life-Threatening, Disabling, Other)
  Sender: FDA-Public Use
  Company Number: None

PATIENT
  Age: 54 Year
  Sex: Female

DRUGS (1)
  1. IMODIUM [Suspect]
     Active Substance: LOPERAMIDE HYDROCHLORIDE
     Indication: DIARRHOEA
     Dosage: ?          OTHER FREQUENCY:EVERY WEEKEND;?
     Route: 048

REACTIONS (5)
  - Depression [None]
  - Loss of consciousness [None]
  - Judgement impaired [None]
  - Product label issue [None]
  - Dependence [None]

NARRATIVE: CASE EVENT DATE: 20171117
